FAERS Safety Report 18723089 (Version 2)
Quarter: 2022Q1

REPORT INFORMATION
  Report Type: Spontaneous
  Country: US (occurrence: US)
  Receive Date: 20210111
  Receipt Date: 20220322
  Transmission Date: 20220424
  Serious: Yes (Other)
  Sender: FDA-Public Use
  Company Number: US-GLAXOSMITHKLINE-US2021GSK005153

PATIENT
  Sex: Male

DRUGS (14)
  1. ZANTAC [Suspect]
     Active Substance: RANITIDINE HYDROCHLORIDE
     Indication: Dyspepsia
     Dosage: UNK UNK, WEEKLY- BUT NOT SURE WHEN RX CHANGED FROM ZANTAC TO RANITIDINE + ALSO BOUGHT OTC
     Route: 065
     Dates: start: 201202, end: 202002
  2. ZANTAC [Suspect]
     Active Substance: RANITIDINE HYDROCHLORIDE
     Indication: Dyspepsia
  3. ZANTAC [Suspect]
     Active Substance: RANITIDINE HYDROCHLORIDE
     Indication: Dyspepsia
     Dosage: UNK UNK, WEEKLY- BUT NOT SURE WHEN RX CHANGED FROM ZANTAC TO RANITIDINE + ALSO BOUGHT OTC
     Route: 065
     Dates: start: 201202, end: 202002
  4. ZANTAC [Suspect]
     Active Substance: RANITIDINE HYDROCHLORIDE
     Indication: Dyspepsia
  5. RANITIDINE [Suspect]
     Active Substance: RANITIDINE
     Indication: Dyspepsia
     Dosage: UNK UNK, WEEKLY- BUT NOT SURE WHEN RX CHANGED FROM ZANTAC TO RANITIDINE + ALSO BOUGHT OTC
     Route: 065
     Dates: start: 201202, end: 202002
  6. RANITIDINE [Suspect]
     Active Substance: RANITIDINE
     Indication: Dyspepsia
  7. RANITIDINE [Suspect]
     Active Substance: RANITIDINE
     Indication: Dyspepsia
     Dosage: UNK UNK, WEEKLY- BUT NOT SURE WHEN RX CHANGED FROM ZANTAC TO RANITIDINE + ALSO BOUGHT OTC
     Route: 065
     Dates: start: 201202, end: 202002
  8. RANITIDINE [Suspect]
     Active Substance: RANITIDINE
     Indication: Dyspepsia
  9. ZANTAC [Suspect]
     Active Substance: RANITIDINE HYDROCHLORIDE
     Indication: Dyspepsia
     Dosage: UNK UNK, WEEKLY- BUT NOT SURE WHEN RX CHANGED FROM ZANTAC TO RANITIDINE + ALSO BOUGHT OTC
     Route: 065
     Dates: start: 201202, end: 202002
  10. ZANTAC [Suspect]
     Active Substance: RANITIDINE HYDROCHLORIDE
     Indication: Dyspepsia
  11. RANITIDINE [Suspect]
     Active Substance: RANITIDINE
     Indication: Dyspepsia
     Dosage: UNK UNK, WEEKLY- BUT NOT SURE WHEN RX CHANGED FROM ZANTAC TO RANITIDINE + ALSO BOUGHT OTC
     Route: 065
     Dates: start: 201202, end: 202002
  12. RANITIDINE [Suspect]
     Active Substance: RANITIDINE
     Indication: Dyspepsia
  13. RANITIDINE [Suspect]
     Active Substance: RANITIDINE
     Indication: Dyspepsia
     Dosage: UNK UNK, WEEKLY- BUT NOT SURE WHEN RX CHANGED FROM ZANTAC TO RANITIDINE + ALSO BOUGHT OTC
     Route: 065
     Dates: start: 201202, end: 202002
  14. RANITIDINE [Suspect]
     Active Substance: RANITIDINE
     Indication: Dyspepsia

REACTIONS (2)
  - Hepatic cancer [Unknown]
  - Brain neoplasm malignant [Unknown]
